FAERS Safety Report 6889101-6 (Version None)
Quarter: 2010Q3

REPORT INFORMATION
  Report Type: 
  Country: None (occurrence: None)
  Receive Date: 20100730
  Receipt Date: 20071228
  Transmission Date: 20110219
  Serious: No
  Sender: FDA-Public Use
  Company Number: US-PFIZER INC-2008000714

PATIENT
  Sex: Male

DRUGS (6)
  1. LIPITOR [Suspect]
     Dates: start: 20071201, end: 20071201
  2. ALL OTHER THERAPEUTIC PRODUCTS [Suspect]
     Indication: CORONARY ARTERY OCCLUSION
     Dates: start: 20071201
  3. VASOTEC [Concomitant]
  4. LOPRESSOR [Concomitant]
  5. ACETYLSALICYLIC ACID SRT [Concomitant]
  6. PLAVIX [Concomitant]

REACTIONS (2)
  - HEPATIC ENZYME INCREASED [None]
  - MALAISE [None]
